FAERS Safety Report 6522332-3 (Version None)
Quarter: 2009Q4

REPORT INFORMATION
  Report Type: 
  Country: None (occurrence: None)
  Receive Date: 20091230
  Receipt Date: 20091224
  Transmission Date: 20100525
  Serious: Yes (Hospitalization)
  Sender: FDA-Public Use
  Company Number: B0620116B

PATIENT
  Sex: Male
  Weight: 2 kg

DRUGS (5)
  1. LAMICTAL [Suspect]
     Indication: EPILEPSY
     Dosage: 300MG PER DAY
     Dates: end: 20080724
  2. STILNOX [Suspect]
  3. TERCIAN [Suspect]
     Dates: end: 20080724
  4. TEMESTA [Suspect]
     Dates: end: 20080724
  5. SERESTA [Concomitant]

REACTIONS (10)
  - CARDIAC MURMUR [None]
  - CRYING [None]
  - DRUG EXPOSURE DURING PREGNANCY [None]
  - GASTROOESOPHAGEAL REFLUX DISEASE [None]
  - MUSCLE SPASMS [None]
  - NEONATAL RESPIRATORY DISTRESS SYNDROME [None]
  - OESOPHAGITIS [None]
  - PREMATURE BABY [None]
  - SLEEP APNOEA SYNDROME [None]
  - VENTRICULAR SEPTAL DEFECT [None]
